FAERS Safety Report 10044305 (Version 1)
Quarter: 2014Q1

REPORT INFORMATION
  Report Type: Spontaneous
  Country: US (occurrence: US)
  Receive Date: 20140328
  Receipt Date: 20140328
  Transmission Date: 20141002
  Serious: Yes (Other)
  Sender: FDA-Public Use
  Company Number: US-SA-2014SA037881

PATIENT
  Sex: Female

DRUGS (2)
  1. MULTAQ [Suspect]
     Indication: ATRIAL FIBRILLATION
     Dates: start: 201402
  2. METOPROLOL [Suspect]
     Indication: ATRIAL FIBRILLATION

REACTIONS (2)
  - Atrial fibrillation [Unknown]
  - Abdominal pain upper [Unknown]
